FAERS Safety Report 13401030 (Version 1)
Quarter: 2017Q2

REPORT INFORMATION
  Report Type: Spontaneous
  Country: NL (occurrence: NL)
  Receive Date: 20170404
  Receipt Date: 20170404
  Transmission Date: 20170830
  Serious: Yes (Other)
  Sender: FDA-Public Use
  Company Number: NL-ASTRAZENECA-2017SE34117

PATIENT
  Sex: Female

DRUGS (4)
  1. PACLITAXEL/CARBO [Concomitant]
     Dates: start: 201404
  2. PACLITAXEL/CARBO [Concomitant]
     Dates: start: 201407
  3. OLAPARIB [Suspect]
     Active Substance: OLAPARIB
     Route: 048
     Dates: end: 201612
  4. OLAPARIB [Suspect]
     Active Substance: OLAPARIB
     Route: 048
     Dates: start: 201606, end: 201609

REACTIONS (3)
  - Thrombocytopenia [Unknown]
  - Fatigue [Unknown]
  - Myelodysplastic syndrome [Unknown]
